FAERS Safety Report 5048681-6 (Version None)
Quarter: 2006Q3

REPORT INFORMATION
  Report Type: 
  Country: None (occurrence: None)
  Receive Date: 20060705
  Receipt Date: 20060628
  Transmission Date: 20061208
  Serious: Yes (Hospitalization, Other)
  Sender: FDA-Public Use
  Company Number: FRWYE859128JUN06

PATIENT
  Age: 45 Year
  Sex: Male

DRUGS (5)
  1. ADVIL [Suspect]
     Indication: WOUND
     Dosage: 400 MG 2X PER 1 DAY, ORAL
     Route: 048
     Dates: start: 20060303, end: 20060306
  2. EXTRANASE (BROMELAINS, , 0) [Suspect]
     Indication: WOUND
     Dosage: 3 TABLET 3X PER 1 DAY, ORAL
     Route: 048
     Dates: start: 20060303, end: 20060306
  3. PYOSTACINE (PRISTINAMYCIN, , 0) [Suspect]
     Indication: WOUND
     Dosage: 1 G 2X PER 1 DAY, ORAL
     Route: 048
     Dates: start: 20060303, end: 20060303
  4. VALSARTAN [Concomitant]
  5. LORAZEPAM [Concomitant]

REACTIONS (8)
  - CHOLESTASIS [None]
  - CYTOLYTIC HEPATITIS [None]
  - DERMATITIS EXFOLIATIVE [None]
  - DRUG RASH WITH EOSINOPHILIA AND SYSTEMIC SYMPTOMS [None]
  - NAUSEA [None]
  - OEDEMA PERIPHERAL [None]
  - RENAL IMPAIRMENT [None]
  - VOMITING [None]
